FAERS Safety Report 4787248-1 (Version None)
Quarter: 2005Q3

REPORT INFORMATION
  Report Type: 
  Country: None (occurrence: None)
  Receive Date: 20050930
  Receipt Date: 20050920
  Transmission Date: 20060218
  Serious: Yes (Hospitalization, Other)
  Sender: FDA-Public Use
  Company Number: HQWYE626126SEP05

PATIENT
  Age: 51 Year
  Sex: Male
  Weight: 87.62 kg

DRUGS (1)
  1. TYGACIL [Suspect]
     Indication: MYCOBACTERIUM CHELONEI INFECTION
     Dosage: 100 MG LOAD, THEN 50 MG EVERY 12 HOURS, INTRAVENOUS
     Route: 042
     Dates: start: 20050910, end: 20050914

REACTIONS (2)
  - PAIN [None]
  - PANCREATITIS [None]
